FAERS Safety Report 24923356 (Version 1)
Quarter: 2025Q1

REPORT INFORMATION
  Report Type: Spontaneous
  Country: US (occurrence: US)
  Receive Date: 20250204
  Receipt Date: 20250204
  Transmission Date: 20250408
  Serious: No
  Sender: SANOFI AVENTIS
  Company Number: US-SA-2025SA033263

PATIENT
  Sex: Female
  Weight: 104.55 kg

DRUGS (18)
  1. DUPIXENT [Suspect]
     Active Substance: DUPILUMAB
     Indication: Dermatitis atopic
     Dosage: 300 MG, QOW
     Route: 058
  2. FISH OIL [Concomitant]
     Active Substance: FISH OIL
  3. OMEGA 3 [Concomitant]
     Active Substance: CAPSAICIN
  4. VITAMINS [Concomitant]
     Active Substance: VITAMINS
     Dosage: UNKNOWN
  5. VITAMIN D3 [Concomitant]
     Active Substance: CHOLECALCIFEROL
  6. DIETARY SUPPLEMENT [Concomitant]
     Active Substance: DIETARY SUPPLEMENT
  7. PROBIOTICS NOS [Concomitant]
     Active Substance: PROBIOTICS NOS
  8. OZEMPIC [Concomitant]
     Active Substance: SEMAGLUTIDE
  9. AMLODIPINE BESYLATE [Concomitant]
     Active Substance: AMLODIPINE BESYLATE
  10. EZETIMIBE [Concomitant]
     Active Substance: EZETIMIBE
  11. PIOGLITAZONE [Concomitant]
     Active Substance: PIOGLITAZONE
  12. ENALAPRIL MALEATE [Concomitant]
     Active Substance: ENALAPRIL MALEATE
  13. PREGABALIN [Concomitant]
     Active Substance: PREGABALIN
  14. PANTOPRAZOLE SODIUM [Concomitant]
     Active Substance: PANTOPRAZOLE SODIUM
  15. HYDROCHLOROTHIAZIDE [Concomitant]
     Active Substance: HYDROCHLOROTHIAZIDE
  16. KETOCONAZOLE [Concomitant]
     Active Substance: KETOCONAZOLE
  17. REPATHA [Concomitant]
     Active Substance: EVOLOCUMAB
  18. ONDANSETRON [Concomitant]
     Active Substance: ONDANSETRON

REACTIONS (2)
  - Injection site pain [Not Recovered/Not Resolved]
  - Skin induration [Not Recovered/Not Resolved]
